FAERS Safety Report 25775138 (Version 1)
Quarter: 2025Q3

REPORT INFORMATION
  Report Type: Spontaneous
  Country: EU (occurrence: EU)
  Receive Date: 20250909
  Receipt Date: 20250909
  Transmission Date: 20251021
  Serious: Yes (Other)
  Sender: JOHNSON AND JOHNSON
  Company Number: None

PATIENT
  Age: 34 Year
  Sex: Male
  Weight: 81 kg

DRUGS (3)
  1. SPRAVATO [Suspect]
     Active Substance: ESKETAMINE
     Indication: Depression
     Dosage: STARTED APPROXIMATELY 11 MONTHS AGO.CONSERVATIVE TREATMENT 84 MG PER 2 WEEKS (HE HAS COMPLETED THE 6
     Route: 045
     Dates: start: 2024
  2. ZINOVAT [Concomitant]
     Indication: Depression
     Route: 050
  3. LAMICTAL [Concomitant]
     Active Substance: LAMOTRIGINE
     Indication: Depression
     Route: 048

REACTIONS (2)
  - Panic attack [Recovered/Resolved]
  - Substance abuse [Recovered/Resolved]

NARRATIVE: CASE EVENT DATE: 20250808
